FAERS Safety Report 18861528 (Version 8)
Quarter: 2022Q1

REPORT INFORMATION
  Report Type: Report from Study
  Country: CA (occurrence: CA)
  Receive Date: 20210208
  Receipt Date: 20220208
  Transmission Date: 20220423
  Serious: Yes (Other)
  Sender: FDA-Public Use
  Company Number: NVSC2021CA004417

PATIENT
  Age: 54 Year
  Sex: Female

DRUGS (6)
  1. ERELZI [Suspect]
     Active Substance: ETANERCEPT-SZZS
     Indication: Psoriatic arthropathy
     Dosage: UNK
     Route: 058
     Dates: start: 2020, end: 2020
  2. ERELZI [Suspect]
     Active Substance: ETANERCEPT-SZZS
     Dosage: 50 MG, QW
     Route: 058
     Dates: start: 20210210
  3. METHOTREXATE [Suspect]
     Active Substance: METHOTREXATE
     Indication: Product used for unknown indication
     Dosage: UNK
     Route: 058
     Dates: start: 2020, end: 202011
  4. METHOTREXATE [Suspect]
     Active Substance: METHOTREXATE
     Dosage: UNK UNK, QW (5 MLS)
     Route: 058
     Dates: start: 20210210
  5. SIMPONI [Concomitant]
     Active Substance: GOLIMUMAB
     Indication: Product used for unknown indication
     Dosage: UNK
     Route: 065
  6. ENBREL [Concomitant]
     Active Substance: ETANERCEPT
     Indication: Product used for unknown indication
     Dosage: UNK
     Route: 058

REACTIONS (18)
  - Rheumatoid arthritis [Unknown]
  - Musculoskeletal stiffness [Unknown]
  - Coma [Unknown]
  - Skin haemorrhage [Unknown]
  - Malaise [Unknown]
  - Inflammation [Unknown]
  - Fear [Unknown]
  - Memory impairment [Unknown]
  - Anxiety [Unknown]
  - Hypersensitivity [Unknown]
  - Swelling face [Unknown]
  - Eye swelling [Unknown]
  - Periorbital swelling [Unknown]
  - Lip swelling [Unknown]
  - Erythema [Unknown]
  - Psoriasis [Unknown]
  - Rash [Unknown]
  - Fatigue [Unknown]

NARRATIVE: CASE EVENT DATE: 20210216
